FAERS Safety Report 8506605-0 (Version None)
Quarter: 2012Q3

REPORT INFORMATION
  Report Type: 
  Country: None (occurrence: None)
  Receive Date: 20120712
  Receipt Date: 20120705
  Transmission Date: 20120928
  Serious: Yes (Hospitalization)
  Sender: FDA-Public Use
  Company Number: US-BRISTOL-MYERS SQUIBB COMPANY-16741431

PATIENT
  Age: 65 Year
  Sex: Male

DRUGS (1)
  1. ERBITUX [Suspect]

REACTIONS (3)
  - DEHYDRATION [None]
  - WHITE BLOOD CELL COUNT DECREASED [None]
  - INTESTINAL OBSTRUCTION [None]
